FAERS Safety Report 6220058-7 (Version None)
Quarter: 2009Q2

REPORT INFORMATION
  Report Type: 
  Country: None (occurrence: None)
  Receive Date: 20090609
  Receipt Date: 20090528
  Transmission Date: 20091009
  Serious: Yes (Hospitalization, Disabling, Other)
  Sender: FDA-Public Use
  Company Number: PHHY2009BR21302

PATIENT
  Sex: Male

DRUGS (6)
  1. LESCOL [Suspect]
     Indication: BLOOD CHOLESTEROL
     Dosage: 40 MG, QD
     Route: 048
  2. EXELON [Concomitant]
     Indication: DEMENTIA ALZHEIMER'S TYPE
     Dosage: 1.5 MG, BID
     Route: 048
  3. AAS [Concomitant]
     Dosage: UNK
     Route: 065
  4. ANCORON [Concomitant]
     Indication: TACHYCARDIA
     Dosage: 200 MG/DAY
     Route: 048
  5. ASPIRIN [Concomitant]
     Indication: BLOOD DISORDER
     Dosage: 100 MG, QD
     Route: 048
  6. ENALAPRIL MALEATE [Concomitant]
     Indication: HYPERTENSION
     Dosage: 5 MG, QD
     Route: 048

REACTIONS (11)
  - BALANCE DISORDER [None]
  - CONFUSIONAL STATE [None]
  - DEMENTIA ALZHEIMER'S TYPE [None]
  - DISORIENTATION [None]
  - FALL [None]
  - FEMUR FRACTURE [None]
  - GASTRITIS HAEMORRHAGIC [None]
  - PAIN IN EXTREMITY [None]
  - SPEECH DISORDER [None]
  - SURGERY [None]
  - VASCULAR CALCIFICATION [None]
